FAERS Safety Report 10242709 (Version 1)
Quarter: 2014Q2

REPORT INFORMATION
  Report Type: Spontaneous
  Country: IL (occurrence: IL)
  Receive Date: 20140617
  Receipt Date: 20140617
  Transmission Date: 20141212
  Serious: Yes (Hospitalization, Other)
  Sender: FDA-Public Use
  Company Number: IL-TEVA-487086ISR

PATIENT
  Sex: Male

DRUGS (2)
  1. ACTOS [Suspect]
     Indication: DIABETES MELLITUS
     Route: 048
     Dates: start: 20140306
  2. ACTOS [Suspect]
     Route: 048
     Dates: start: 20140402, end: 201405

REACTIONS (4)
  - Pulmonary oedema [Recovered/Resolved]
  - Weight increased [Recovered/Resolved]
  - Swelling [Recovered/Resolved]
  - Dyspnoea [Recovered/Resolved]
